FAERS Safety Report 6822070-3 (Version None)
Quarter: 2010Q3

REPORT INFORMATION
  Report Type: 
  Country: None (occurrence: None)
  Receive Date: 20100706
  Receipt Date: 20100317
  Transmission Date: 20110219
  Serious: Yes (Disabling, Congenital Anomaly)
  Sender: FDA-Public Use
  Company Number: 2010AL001690

PATIENT

DRUGS (1)
  1. CETIRIZINE HCL [Suspect]
     Indication: DRUG EXPOSURE DURING PREGNANCY
     Dosage: TRPL
     Route: 064

REACTIONS (2)
  - DEAFNESS CONGENITAL [None]
  - MATERNAL DRUGS AFFECTING FOETUS [None]
